FAERS Safety Report 17321971 (Version 1)
Quarter: 2020Q1

REPORT INFORMATION
  Report Type: Other
  Country: US (occurrence: US)
  Receive Date: 20200127
  Receipt Date: 20200127
  Transmission Date: 20200409
  Serious: No
  Sender: FDA-Public Use
  Company Number: US-ACORDA-ACO_160022_2019

PATIENT
  Age: 52 Year
  Sex: Male
  Weight: 83.08 kg

DRUGS (2)
  1. TYSABRI [Suspect]
     Active Substance: NATALIZUMAB
     Indication: MULTIPLE SCLEROSIS
     Dosage: INFUSED OVER 1 HOUR 300MG ONCE A MONTH
     Route: 042
     Dates: start: 20070105
  2. DALFAMPRIDINE. [Suspect]
     Active Substance: DALFAMPRIDINE
     Indication: GAIT DISTURBANCE
     Dosage: 10 MILLIGRAM, Q 12 HRS
     Route: 048

REACTIONS (9)
  - High density lipoprotein decreased [Unknown]
  - Non-high-density lipoprotein cholesterol increased [Unknown]
  - Blood cholesterol increased [Unknown]
  - Vitamin D decreased [Unknown]
  - Mean cell haemoglobin increased [Unknown]
  - Low density lipoprotein increased [Unknown]
  - Total cholesterol/HDL ratio increased [Unknown]
  - Peroneal nerve palsy [Unknown]
  - Blood triglycerides increased [Unknown]

NARRATIVE: CASE EVENT DATE: 20190605
